FAERS Safety Report 7654575-X (Version None)
Quarter: 2011Q3

REPORT INFORMATION
  Report Type: 
  Country: None (occurrence: None)
  Receive Date: 20110803
  Receipt Date: 20110729
  Transmission Date: 20111222
  Serious: Yes (Death)
  Sender: FDA-Public Use
  Company Number: CA-ASTRAZENECA-2011SE42097

PATIENT
  Age: 85 Year
  Sex: Male
  Weight: 53.1 kg

DRUGS (6)
  1. VIMOVO [Suspect]
     Dosage: 500 MG/20 MG DAILY
     Route: 048
     Dates: start: 20110601
  2. CORTIZON [Concomitant]
  3. ASPIRIN [Concomitant]
  4. PERINDOPRIL ERBUMINE [Concomitant]
     Indication: HYPERTENSION
     Route: 048
  5. IBUPROFEN [Concomitant]
  6. TYLENOL W/ CODEINE NO. 3 [Concomitant]

REACTIONS (2)
  - CEREBROVASCULAR ACCIDENT [None]
  - HAEMORRHAGE INTRACRANIAL [None]
